FAERS Safety Report 8052905-0 (Version None)
Quarter: 2012Q1

REPORT INFORMATION
  Report Type: 
  Country: None (occurrence: None)
  Receive Date: 20120118
  Receipt Date: 20120113
  Transmission Date: 20120608
  Serious: Yes (Hospitalization, Other)
  Sender: FDA-Public Use
  Company Number: CH-JNJFOC-20120105287

PATIENT
  Sex: Female

DRUGS (4)
  1. PALIPERIDONE [Suspect]
     Indication: PRODUCT USED FOR UNKNOWN INDICATION
     Route: 030
  2. FLUANXOL (FLUPENTIXOL) [Suspect]
     Indication: PRODUCT USED FOR UNKNOWN INDICATION
     Route: 065
     Dates: end: 20110601
  3. PALIPERIDONE [Suspect]
     Route: 030
     Dates: start: 20110601
  4. BENZODIAZEPINE NOS [Concomitant]
     Indication: DRUG DEPENDENCE
     Route: 065

REACTIONS (3)
  - ANXIETY [None]
  - RESTLESSNESS [None]
  - INSOMNIA [None]
